FAERS Safety Report 11409337 (Version 1)
Quarter: 2015Q3

REPORT INFORMATION
  Report Type: Spontaneous
  Country: US (occurrence: None)
  Receive Date: 20150820
  Receipt Date: 20150820
  Transmission Date: 20151125
  Serious: Yes (Other)
  Sender: FDA-Public Use
  Company Number: ADR-2015-01575

PATIENT
  Age: 49 Year
  Sex: Female

DRUGS (3)
  1. BACLOFEN ORAL [Suspect]
     Active Substance: BACLOFEN
  2. CLONIPINE [Suspect]
     Active Substance: CLONAZEPAM
  3. BACLOFEN INTRATHECAL [Suspect]
     Active Substance: BACLOFEN
     Indication: MUSCLE SPASTICITY

REACTIONS (4)
  - Surgery [None]
  - Device related infection [None]
  - Dystonia [None]
  - Implant site infection [None]
